FAERS Safety Report 8260043-7 (Version None)
Quarter: 2012Q2

REPORT INFORMATION
  Report Type: 
  Country: None (occurrence: None)
  Receive Date: 20120404
  Receipt Date: 20120404
  Transmission Date: 20120825
  Serious: Yes (Other)
  Sender: FDA-Public Use
  Company Number: FR-B.I. PHARMACEUTICALS,INC./RIDGEFIELD-2011-EU-00990GL

PATIENT
  Sex: Male

DRUGS (8)
  1. VANCOMYCIN [Suspect]
     Dosage: 750 MG
     Route: 042
     Dates: start: 20101031, end: 20101104
  2. FUROSEMIDE [Concomitant]
     Dates: end: 20111105
  3. GENTAMICIN SULFATE [Suspect]
     Dosage: 450 MG
     Dates: start: 20101031, end: 20101104
  4. DIGOXIN [Concomitant]
     Dates: end: 20111105
  5. BISOPROLOL FUMARATE [Concomitant]
  6. ALLOPURINOL [Suspect]
     Dosage: 200 RT
     Route: 048
     Dates: start: 20100731, end: 20101020
  7. EPLERENONE [Suspect]
     Dosage: 25 MG
     Route: 048
     Dates: end: 20101111
  8. TELMISARTAN [Suspect]
     Route: 048
     Dates: end: 20101105

REACTIONS (2)
  - RENAL FAILURE ACUTE [None]
  - LEUKOCYTURIA [None]
